FAERS Safety Report 9000039 (Version 1)
Quarter: 2013Q1

REPORT INFORMATION
  Report Type: Spontaneous
  Country: FR (occurrence: FR)
  Receive Date: 20130102
  Receipt Date: 20130102
  Transmission Date: 20140127
  Serious: Yes (Hospitalization)
  Sender: FDA-Public Use
  Company Number: FR-BAYER-2012-135212

PATIENT
  Age: 18 Year
  Sex: Female

DRUGS (6)
  1. CIFLOX [Suspect]
     Indication: CERVICITIS
     Dosage: UNK
     Route: 048
     Dates: start: 20120522, end: 20120526
  2. IBUPROFEN [Suspect]
     Indication: CERVICITIS
     Dosage: UNK
     Route: 048
     Dates: start: 20120522, end: 20120526
  3. ROXITHROMYCINE [Concomitant]
     Dosage: UNK
     Dates: start: 20120531, end: 20120601
  4. AZITHROMYCIN [Concomitant]
     Indication: CERVICITIS
     Dosage: UNK
     Route: 048
     Dates: start: 20120526, end: 20120531
  5. SOLUPRED [PREDNISOLONE] [Concomitant]
     Dosage: UNK
     Dates: start: 20120526, end: 20120531
  6. CORTANCYL [Concomitant]
     Dosage: UNK
     Dates: start: 20120531, end: 20120601

REACTIONS (3)
  - Face oedema [Recovered/Resolved]
  - Mouth ulceration [Recovered/Resolved]
  - Stevens-Johnson syndrome [Recovered/Resolved]
